FAERS Safety Report 11093851 (Version 2)
Quarter: 2015Q4

REPORT INFORMATION
  Report Type: Spontaneous
  Country: US (occurrence: US)
  Receive Date: 20150506
  Receipt Date: 20151009
  Transmission Date: 20160304
  Serious: Yes (Hospitalization, Other)
  Sender: FDA-Public Use
  Company Number: US-ASTRAZENECA-2007BM13497

PATIENT
  Age: 640 Month
  Sex: Male
  Weight: 147.4 kg

DRUGS (12)
  1. CRESTOR [Concomitant]
     Active Substance: ROSUVASTATIN CALCIUM
     Indication: BLOOD CHOLESTEROL INCREASED
     Route: 048
     Dates: start: 20060919
  2. IBUPROFEN. [Concomitant]
     Active Substance: IBUPROFEN
  3. WELLBUTRIN [Concomitant]
     Active Substance: BUPROPION HYDROCHLORIDE
  4. BYETTA [Suspect]
     Active Substance: EXENATIDE
     Indication: TYPE 2 DIABETES MELLITUS
     Dosage: 025MG/ML, 10 UG TWO TIMES A DAY
     Route: 058
     Dates: start: 200507
  5. METFORMIN [Concomitant]
     Active Substance: METFORMIN HYDROCHLORIDE
     Indication: DIABETES MELLITUS
     Route: 048
     Dates: start: 20061128
  6. PERCOCET [Concomitant]
     Active Substance: ACETAMINOPHEN\OXYCODONE HYDROCHLORIDE
     Dosage: PRN
  7. EXENATIDE [Concomitant]
     Active Substance: EXENATIDE
     Dosage: 10 MCG
  8. BYDUREON [Suspect]
     Active Substance: EXENATIDE
     Indication: TYPE 2 DIABETES MELLITUS
     Route: 058
  9. LEXAPRO [Concomitant]
     Active Substance: ESCITALOPRAM OXALATE
     Indication: DEPRESSION
     Dosage: UNK
     Dates: start: 200506, end: 2006
  10. ALTACE [Concomitant]
     Active Substance: RAMIPRIL
     Indication: HYPERTENSION
     Dates: start: 20051017
  11. INDOCIN [Concomitant]
     Active Substance: INDOMETHACIN\INDOMETHACIN SODIUM
     Indication: GOUT
     Dosage: PRN
  12. BYETTA [Suspect]
     Active Substance: EXENATIDE
     Indication: TYPE 2 DIABETES MELLITUS
     Dosage: 025MG/ML,  5 UG TWO TIMES A DAY
     Route: 058
     Dates: start: 200506, end: 200507

REACTIONS (15)
  - Product quality issue [Unknown]
  - Disturbance in attention [Unknown]
  - Nausea [Unknown]
  - Blood glucose increased [Unknown]
  - Renal impairment [Unknown]
  - Underdose [Unknown]
  - Feeling abnormal [Recovered/Resolved]
  - Weight increased [Unknown]
  - Gout [Unknown]
  - Weight decreased [Not Recovered/Not Resolved]
  - Dizziness [Unknown]
  - Injection site haemorrhage [Unknown]
  - Soft tissue infection [Unknown]
  - Influenza like illness [Recovered/Resolved]
  - Osteomyelitis [Unknown]

NARRATIVE: CASE EVENT DATE: 200506
